FAERS Safety Report 23839705 (Version 1)
Quarter: 2024Q2

REPORT INFORMATION
  Report Type: Spontaneous
  Country: FR (occurrence: FR)
  Receive Date: 20240510
  Receipt Date: 20240510
  Transmission Date: 20240716
  Serious: Yes (Hospitalization, Other)
  Sender: FDA-Public Use
  Company Number: FR-AFSSAPS-NY2024000443

PATIENT
  Age: 29 Year
  Sex: Female
  Weight: 85 kg

DRUGS (4)
  1. DOXYCYCLINE [Suspect]
     Active Substance: DOXYCYCLINE
     Indication: Staphylococcal infection
     Dosage: 1 DOSAGE FORM (25 DAYS PER MONTH)
     Route: 065
     Dates: start: 20240317, end: 20240411
  2. IMODIUM [Suspect]
     Active Substance: LOPERAMIDE HYDROCHLORIDE
     Indication: Diarrhoea
     Dosage: 1 DOSAGE FORM, AS NECESSARY
     Route: 048
     Dates: start: 20240312, end: 20240414
  3. PRISTINAMYCIN [Suspect]
     Active Substance: PRISTINAMYCIN
     Indication: Staphylococcal infection
     Dosage: 2 DOSAGE FORM, 3 TIMES A DAY (2 COMPRIM?S 3 FOIS PAR JOURS PENDANT 5 JOURS)
     Route: 048
     Dates: start: 20240312, end: 20240317
  4. PRISTINAMYCIN [Suspect]
     Active Substance: PRISTINAMYCIN
     Dosage: 2 DOSAGE FORM, 3 TIMES A DAY (2 COMPRIM?S 3 FOIS PAR JOURS PENDANT 5 JOURS)
     Route: 048
     Dates: start: 20240411, end: 20240414

REACTIONS (2)
  - Clostridium difficile colitis [Not Recovered/Not Resolved]
  - Product prescribing issue [Recovered/Resolved]

NARRATIVE: CASE EVENT DATE: 20240312
